FAERS Safety Report 5723572-3 (Version None)
Quarter: 2008Q2

REPORT INFORMATION
  Report Type: 
  Country: None (occurrence: None)
  Receive Date: 20080430
  Receipt Date: 20080422
  Transmission Date: 20081010
  Serious: Yes (Hospitalization)
  Sender: FDA-Public Use
  Company Number: B0517883A

PATIENT
  Age: 39 Year
  Sex: Female

DRUGS (8)
  1. FORTUM [Suspect]
     Route: 042
     Dates: start: 20080207, end: 20080214
  2. VANCOMYCIN HCL [Suspect]
     Route: 042
     Dates: start: 20080202, end: 20080213
  3. TAZOCILLINE [Concomitant]
     Route: 065
     Dates: start: 20080130, end: 20080207
  4. AMIKACIN [Concomitant]
     Route: 065
     Dates: start: 20080130, end: 20080214
  5. FLUCONAZOLE [Concomitant]
     Route: 065
     Dates: start: 20080204, end: 20080213
  6. TARGOCID [Concomitant]
     Route: 065
     Dates: start: 20080213, end: 20080217
  7. AMBISOME [Concomitant]
     Route: 065
     Dates: start: 20080213
  8. MERONEM [Concomitant]
     Route: 065
     Dates: start: 20080214

REACTIONS (5)
  - DERMATITIS EXFOLIATIVE [None]
  - PURPURA [None]
  - PYREXIA [None]
  - TOXIC SKIN ERUPTION [None]
  - VASCULITIS [None]
